FAERS Safety Report 6328914-6 (Version None)
Quarter: 2009Q3

REPORT INFORMATION
  Report Type: 
  Country: None (occurrence: None)
  Receive Date: 20090826
  Receipt Date: 20090819
  Transmission Date: 20100115
  Serious: No
  Sender: FDA-Public Use
  Company Number: US-JNJFOC-20090806716

PATIENT
  Sex: Male
  Weight: 77.11 kg

DRUGS (11)
  1. DURAGESIC-100 [Suspect]
     Indication: PAIN IN EXTREMITY
     Route: 062
  2. LEVAQUIN [Concomitant]
     Indication: INFECTION PROPHYLAXIS
     Route: 048
  3. ONDANSETRON [Concomitant]
     Indication: NAUSEA
     Dosage: AS NEEDED
     Route: 048
  4. BACTRIM [Concomitant]
     Indication: INFECTION PROPHYLAXIS
     Route: 048
  5. ATRIPLA [Concomitant]
     Indication: HIV INFECTION
     Route: 048
  6. GABAPENTIN [Concomitant]
     Indication: NEURALGIA
     Route: 048
  7. HYDROCODONE [Concomitant]
     Indication: PAIN IN EXTREMITY
     Dosage: 1 OR 2 EVERY 4 HOURS AS NEEDED
     Route: 048
  8. WARFARIN [Concomitant]
     Indication: THROMBOSIS
     Route: 048
  9. PANTOPRAZOLE SODIUM [Concomitant]
     Indication: GASTROOESOPHAGEAL REFLUX DISEASE
     Dosage: AS NEEDED
     Route: 048
  10. ERYTHROMYCIN [Concomitant]
     Indication: INFECTION PROPHYLAXIS
     Route: 048
  11. KLONOPIN [Concomitant]
     Indication: ANXIETY
     Dosage: AS NEEDED
     Route: 048

REACTIONS (4)
  - DEVICE ADHESION ISSUE [None]
  - DRUG DOSE OMISSION [None]
  - DRUG EFFECT DECREASED [None]
  - EUPHORIC MOOD [None]
